FAERS Safety Report 9003651 (Version 1)
Quarter: 2013Q1

REPORT INFORMATION
  Report Type: Spontaneous
  Country: US (occurrence: US)
  Receive Date: 20130108
  Receipt Date: 20130108
  Transmission Date: 20140127
  Serious: No
  Sender: FDA-Public Use
  Company Number: US-GLAXOSMITHKLINE-A0952809A

PATIENT
  Age: 77 Year
  Sex: Female

DRUGS (6)
  1. LOVAZA [Suspect]
     Indication: BLOOD CHOLESTEROL INCREASED
     Dosage: 2CAP TWICE PER DAY
     Route: 048
     Dates: start: 20110930, end: 20111009
  2. LIVALO [Suspect]
     Indication: BLOOD CHOLESTEROL INCREASED
     Dosage: 2MG PER DAY
     Route: 048
     Dates: start: 20110930
  3. CALCIUM PLUS D [Concomitant]
  4. CENTRUM SILVER [Concomitant]
  5. BABY ASPIRIN [Concomitant]
  6. COQ10 [Concomitant]

REACTIONS (8)
  - Flatulence [Recovered/Resolved]
  - Eructation [Unknown]
  - Musculoskeletal pain [Unknown]
  - Retching [Unknown]
  - Vomiting [Unknown]
  - Ageusia [Unknown]
  - Asthenia [Unknown]
  - Pain in extremity [Unknown]
